FAERS Safety Report 5674889-2 (Version None)
Quarter: 2008Q1

REPORT INFORMATION
  Report Type: 
  Country: None (occurrence: None)
  Receive Date: 20080319
  Receipt Date: 20080319
  Transmission Date: 20080703
  Serious: No
  Sender: FDA-Public Use
  Company Number: None

PATIENT
  Age: 31 Year
  Sex: Female
  Weight: 65 kg

DRUGS (1)
  1. HALOPERIDOL LACTATE [Suspect]
     Dosage: 2 MG NOW IV
     Route: 042
     Dates: start: 20080210, end: 20080210

REACTIONS (1)
  - CONVULSION [None]
